FAERS Safety Report 8008333-7 (Version None)
Quarter: 2011Q4

REPORT INFORMATION
  Report Type: 
  Country: None (occurrence: None)
  Receive Date: 20111227
  Receipt Date: 20111215
  Transmission Date: 20120403
  Serious: Yes (Other)
  Sender: FDA-Public Use
  Company Number: PHHY2011AR109711

PATIENT
  Sex: Female

DRUGS (1)
  1. EXELON [Suspect]
     Indication: MEMORY IMPAIRMENT
     Dosage: 4.6 MG\24H
     Route: 062
     Dates: start: 20110901

REACTIONS (8)
  - CYSTITIS [None]
  - MEMORY IMPAIRMENT [None]
  - ABDOMINAL PAIN UPPER [None]
  - RIB FRACTURE [None]
  - FALL [None]
  - JOINT INJURY [None]
  - BACK PAIN [None]
  - DIZZINESS [None]
